FAERS Safety Report 9769038 (Version 6)
Quarter: 2014Q1

REPORT INFORMATION
  Report Type: Report from Study
  Country: CA (occurrence: CA)
  Receive Date: 20131218
  Receipt Date: 20140116
  Transmission Date: 20141002
  Serious: No
  Sender: FDA-Public Use
  Company Number: CA-ROCHE-1321629

PATIENT
  Sex: Female
  Weight: 100 kg

DRUGS (6)
  1. AVASTIN [Suspect]
     Indication: GLIOBLASTOMA MULTIFORME
     Route: 042
     Dates: start: 20131203
  2. AVASTIN [Suspect]
     Dosage: 10MG/KG ONCE IN 2 WEEKS AT 100KG
     Route: 042
     Dates: start: 20140109
  3. DECADRON [Concomitant]
  4. KEPPRA [Concomitant]
  5. ZANTAC [Concomitant]
  6. LOVENOX [Concomitant]

REACTIONS (6)
  - Weight increased [Not Recovered/Not Resolved]
  - Chest pain [Recovered/Resolved]
  - Skin ulcer [Unknown]
  - Ulcer haemorrhage [Unknown]
  - Fatigue [Unknown]
  - Weight decreased [Unknown]
